FAERS Safety Report 10587997 (Version 2)
Quarter: 2015Q3

REPORT INFORMATION
  Report Type: Spontaneous
  Country: FR (occurrence: FR)
  Receive Date: 20141117
  Receipt Date: 20150814
  Transmission Date: 20151125
  Serious: Yes (Hospitalization)
  Sender: FDA-Public Use
  Company Number: FR-TEVA-521340ISR

PATIENT
  Age: 67 Year
  Sex: Male

DRUGS (17)
  1. INSPRA [Concomitant]
     Active Substance: EPLERENONE
     Dosage: 12.5 MILLIGRAM DAILY; USUAL TREATMENT STARTED AT LEAST IN FEB-2013. INTAKE AT NOON
     Route: 048
  2. PERINDOPRIL [Concomitant]
     Active Substance: PERINDOPRIL
     Dosage: 8 MILLIGRAM DAILY; USUAL TREATMENT STARTED AT LEAST IN FEB-2013. INTAKE IN THE MORNING
     Route: 048
  3. METFORMINE [Concomitant]
     Active Substance: METFORMIN HYDROCHLORIDE
     Route: 048
  4. DAFALGAN CODEINE [Concomitant]
     Active Substance: ACETAMINOPHEN\CODEINE PHOSPHATE
     Indication: BACK PAIN
     Dates: start: 20140430, end: 20140911
  5. PLAVIX [Concomitant]
     Active Substance: CLOPIDOGREL BISULFATE
     Dosage: 75 MILLIGRAM DAILY; USUAL TREATMENT STARTED AT LEAST IN FEB-2013. INTAKE AT NOON
     Route: 048
  6. FUMARATE ACIDE DE BISOPROLOL [Concomitant]
     Dosage: 10 MILLIGRAM DAILY; USUAL TREATMENT STARTED AT LEAST IN FEB-2013
     Route: 048
  7. FUROSEMIDE TEVA 40 MG [Suspect]
     Active Substance: FUROSEMIDE
     Dosage: 40 MILLIGRAM DAILY; USUAL TREATMENT STARTED AT LEAST IN FEB-2013
     Route: 048
  8. FUROSEMIDE TEVA 40 MG [Suspect]
     Active Substance: FUROSEMIDE
     Dosage: 20 MILLIGRAM DAILY;
     Route: 048
     Dates: start: 20140430
  9. FUROSEMIDE TEVA 40 MG [Suspect]
     Active Substance: FUROSEMIDE
     Dosage: 60 MILLIGRAM DAILY;
     Route: 048
     Dates: start: 20140522
  10. VICTOZA [Suspect]
     Active Substance: LIRAGLUTIDE
     Dosage: 1.2 MILLIGRAM DAILY; USUAL TREATMENT STARTED AT LEAST IN FEB-2013. INTAKE IN THE EVENING
     Route: 058
  11. MOPRAL 20 MG [Concomitant]
     Indication: BACK PAIN
     Dosage: 20 MILLIGRAM DAILY;
     Route: 048
     Dates: start: 20140430
  12. KETOPROFENE BIOGARAN LP 100 MG [Suspect]
     Active Substance: KETOPROFEN
     Indication: BACK PAIN
     Dosage: 200 MILLIGRAM DAILY;
     Route: 048
     Dates: start: 20140430, end: 20140511
  13. TAHOR [Concomitant]
     Active Substance: ATORVASTATIN CALCIUM
     Dosage: 80 MILLIGRAM DAILY; STARTED AT LEAST IN FEB-2013. INTAKE IN THE EVENING
     Route: 048
  14. DIAMICRON [Concomitant]
     Active Substance: GLICLAZIDE
     Dosage: 60 MILLIGRAM DAILY; USUAL TREATMENT STARTED AT LEAST IN FEB-2013
     Route: 048
  15. MECIR LP [Concomitant]
     Active Substance: TAMSULOSIN HYDROCHLORIDE
     Dosage: .4 MILLIGRAM DAILY; USUAL TREATMENT STARTED AT LEAST IN FEB-2013.
     Route: 048
  16. DIFFU-K [Concomitant]
     Active Substance: POTASSIUM CHLORIDE
     Dosage: 1 DOSAGE FORMS DAILY; USUAL TREATMENT. INTAKE IN THE MORNING
  17. CHLORHYDRATE DE LERCANIDIPINE [Concomitant]
     Dosage: 10 MILLIGRAM DAILY; USUAL TREATMENT STARTED AT LEAST IN FEB-2013. INTAKE IN THE MORNING
     Route: 048

REACTIONS (6)
  - Acute pulmonary oedema [Recovered/Resolved with Sequelae]
  - General physical health deterioration [Recovered/Resolved]
  - Nausea [Recovered/Resolved]
  - Constipation [Recovered/Resolved]
  - Dyspnoea [Recovered/Resolved]
  - Cardiac failure [Recovered/Resolved]

NARRATIVE: CASE EVENT DATE: 20140511
